FAERS Safety Report 14831052 (Version 4)
Quarter: 2019Q1

REPORT INFORMATION
  Report Type: Report from Study
  Country: None (occurrence: US)
  Receive Date: 20180430
  Receipt Date: 20190101
  Transmission Date: 20190417
  Serious: Yes (Hospitalization, Other)
  Sender: FDA-Public Use
  Company Number: US-ABBVIE-18K-163-2337800-00

PATIENT
  Age: 60 Year
  Sex: Female

DRUGS (1)
  1. HUMIRA [Suspect]
     Active Substance: ADALIMUMAB
     Indication: CROHN^S DISEASE
     Route: 058
     Dates: start: 20170610

REACTIONS (11)
  - Neuropathy peripheral [Not Recovered/Not Resolved]
  - Hiatus hernia [Unknown]
  - Headache [Not Recovered/Not Resolved]
  - Gastrointestinal ulcer [Unknown]
  - Gastrointestinal inflammation [Unknown]
  - Abdominal pain upper [Unknown]
  - Contusion [Unknown]
  - Blood iron decreased [Unknown]
  - Increased tendency to bruise [Not Recovered/Not Resolved]
  - Intestinal obstruction [Unknown]
  - Asthenia [Unknown]

NARRATIVE: CASE EVENT DATE: 2018
